FAERS Safety Report 26137540 (Version 1)
Quarter: 2025Q4

REPORT INFORMATION
  Report Type: Spontaneous
  Country: US (occurrence: US)
  Receive Date: 20251209
  Receipt Date: 20251209
  Transmission Date: 20260118
  Serious: No
  Sender: ABBVIE
  Company Number: US-ABBVIE-6579421

PATIENT
  Sex: Female

DRUGS (1)
  1. VYALEV [Suspect]
     Active Substance: FOSCARBIDOPA\FOSLEVODOPA
     Indication: Parkinson^s disease
     Dosage: 10 MILLIGRAM/MILLILITERS
     Route: 058
     Dates: start: 20251204

REACTIONS (1)
  - Infusion site pain [Recovered/Resolved]

NARRATIVE: CASE EVENT DATE: 20251204
